FAERS Safety Report 8328017-5 (Version None)
Quarter: 2012Q2

REPORT INFORMATION
  Report Type: 
  Country: None (occurrence: None)
  Receive Date: 20120502
  Receipt Date: 20120420
  Transmission Date: 20120825
  Serious: Yes (Other)
  Sender: FDA-Public Use
  Company Number: US-BRISTOL-MYERS SQUIBB COMPANY-16492811

PATIENT
  Age: 85 Year
  Sex: Male
  Weight: 61 kg

DRUGS (19)
  1. ERBITUX [Suspect]
     Indication: HEAD AND NECK CANCER
     Dosage: TREATMENT DATES 08MAR12, 15MAR12, 29MAR12
     Route: 042
     Dates: start: 20120301
  2. FOLBIC [Concomitant]
  3. MELOXICAM [Concomitant]
  4. PENTOXIFYLLINE [Concomitant]
  5. RECLAST [Concomitant]
  6. PRILOSEC [Concomitant]
  7. GLIPIZIDE [Concomitant]
  8. AZILECT [Concomitant]
  9. PRANDIN [Concomitant]
  10. HYPOTEARS DDPF [Concomitant]
  11. CARBIDOPA AND LEVODOPA [Concomitant]
     Dosage: CARBIDOPA/LEVODOPA 50-200 MYLA TID
  12. REQUIP [Concomitant]
  13. CITRICAL [Concomitant]
  14. FENTANYL-100 [Concomitant]
     Route: 062
  15. METOPROLOL TARTRATE [Concomitant]
  16. LIPITOR [Concomitant]
  17. ASPIRIN [Concomitant]
  18. JANUVIA [Concomitant]
  19. SYNTHROID [Concomitant]

REACTIONS (9)
  - FALL [None]
  - DEHYDRATION [None]
  - TONGUE HAEMORRHAGE [None]
  - WEIGHT DECREASED [None]
  - DISORIENTATION [None]
  - BLOOD MAGNESIUM DECREASED [None]
  - ORAL PAIN [None]
  - HYPOPHAGIA [None]
  - BLOOD PRESSURE DIASTOLIC DECREASED [None]
